FAERS Safety Report 17993060 (Version 2)
Quarter: 2021Q3

REPORT INFORMATION
  Report Type: Spontaneous
  Country: US (occurrence: US)
  Receive Date: 20200707
  Receipt Date: 20210707
  Transmission Date: 20211014
  Serious: No
  Sender: FDA-Public Use
  Company Number: US-ROCHE-2495928

PATIENT
  Age: 68 Year
  Sex: Female
  Weight: 51.2 kg

DRUGS (15)
  1. GOCOVRI [Concomitant]
     Active Substance: AMANTADINE
     Dosage: 1 DAY AT NIGHT
     Route: 048
     Dates: start: 20190929, end: 20191008
  2. MAGNESIUM [Concomitant]
     Active Substance: MAGNESIUM
  3. PRESERVISION [Concomitant]
     Active Substance: MINERALS\VITAMINS
  4. GOCOVRI [Concomitant]
     Active Substance: AMANTADINE
     Route: 048
     Dates: start: 20191111
  5. NIFEDIPINE. [Concomitant]
     Active Substance: NIFEDIPINE
     Indication: DYSKINESIA
     Route: 048
     Dates: start: 20190929
  6. NEUPRO [Concomitant]
     Active Substance: ROTIGOTINE
  7. NIFEDIPINE. [Concomitant]
     Active Substance: NIFEDIPINE
     Route: 048
     Dates: start: 201909
  8. CELLCEPT [Suspect]
     Active Substance: MYCOPHENOLATE MOFETIL\MYCOPHENOLATE MOFETIL HYDROCHLORIDE
     Indication: DYSKINESIA
     Route: 048
     Dates: start: 201909
  9. CARBIDOPA. [Concomitant]
     Active Substance: CARBIDOPA
     Dosage: 25/100 MG TABLET
  10. GOCOVRI [Concomitant]
     Active Substance: AMANTADINE
     Indication: DYSKINESIA
     Dosage: 1 DAY AT NIGHT
     Route: 048
     Dates: start: 20190910, end: 20191011
  11. MELATONIN [Concomitant]
     Active Substance: MELATONIN
  12. RYTARY [Concomitant]
     Active Substance: CARBIDOPA\LEVODOPA
     Indication: PRODUCT USED FOR UNKNOWN INDICATION
     Route: 048
     Dates: start: 20191115
  13. CLONAZEPAM. [Concomitant]
     Active Substance: CLONAZEPAM
  14. GOCOVRI [Concomitant]
     Active Substance: AMANTADINE
     Route: 048
     Dates: start: 20191111
  15. ALPHA LIPOIC ACID [Concomitant]
     Active Substance: .ALPHA.-LIPOIC ACID

REACTIONS (21)
  - Mood altered [Not Recovered/Not Resolved]
  - Impulsive behaviour [Not Recovered/Not Resolved]
  - Anxiety [Not Recovered/Not Resolved]
  - Dyspnoea [Unknown]
  - Secretion discharge [Unknown]
  - Psychomotor hyperactivity [Not Recovered/Not Resolved]
  - Nasal congestion [Unknown]
  - Sleep disorder [Unknown]
  - Visual impairment [Not Recovered/Not Resolved]
  - Dystonia [Not Recovered/Not Resolved]
  - Depression [Not Recovered/Not Resolved]
  - Fatigue [Unknown]
  - On and off phenomenon [Recovered/Resolved]
  - Abnormal dreams [Unknown]
  - Irritability [Not Recovered/Not Resolved]
  - Compulsions [Not Recovered/Not Resolved]
  - Drug ineffective [Unknown]
  - Periorbital swelling [Unknown]
  - Memory impairment [Unknown]
  - Disturbance in attention [Recovered/Resolved]
  - Dyskinesia [Recovered/Resolved]

NARRATIVE: CASE EVENT DATE: 201909
